FAERS Safety Report 9543077 (Version 1)
Quarter: 2013Q3

REPORT INFORMATION
  Report Type: Report from Study
  Country: DE (occurrence: DE)
  Receive Date: 20130923
  Receipt Date: 20130923
  Transmission Date: 20140515
  Serious: Yes (Death, Hospitalization)
  Sender: FDA-Public Use
  Company Number: DE-ROCHE-1276589

PATIENT
  Age: 73 Year
  Sex: Female

DRUGS (10)
  1. BEVACIZUMAB [Suspect]
     Indication: COLON CANCER
     Route: 042
     Dates: start: 20080428, end: 20080919
  2. CAPECITABINE [Suspect]
     Indication: COLON CANCER
     Route: 048
  3. MORPHINE [Suspect]
     Indication: PAIN
     Dosage: VARIABLE
     Route: 048
     Dates: end: 20130228
  4. PREGABALINE [Suspect]
     Indication: PAIN
     Route: 048
     Dates: start: 20090202, end: 20090203
  5. OMEPRAZOL [Concomitant]
     Indication: PROPHYLAXIS AGAINST GASTROINTESTINAL ULCER
     Route: 048
     Dates: end: 20090228
  6. ENALAPRIL [Concomitant]
     Indication: HYPERTENSION
     Route: 048
     Dates: end: 20090228
  7. MACROGOL [Concomitant]
     Indication: CONSTIPATION
     Route: 048
     Dates: end: 20090228
  8. NOVAMINSULFON [Concomitant]
     Indication: PAIN
     Route: 048
     Dates: end: 20090228
  9. MITOMYCIN [Concomitant]
     Indication: COLON CANCER
  10. VINORELBINA [Concomitant]
     Indication: COLON CANCER

REACTIONS (10)
  - Malignant neoplasm progression [Fatal]
  - Productive cough [Recovered/Resolved]
  - Cough [Recovered/Resolved]
  - Pyrexia [Recovered/Resolved]
  - Dyspnoea [Recovered/Resolved]
  - Constipation [Recovered/Resolved]
  - Abdominal pain lower [Recovered/Resolved]
  - Tremor [Unknown]
  - Confusional state [Unknown]
  - Fall [Unknown]
